FAERS Safety Report 4542290-0 (Version None)
Quarter: 2005Q1

REPORT INFORMATION
  Report Type: 
  Country: None (occurrence: None)
  Receive Date: 20041227
  Receipt Date: 20041213
  Transmission Date: 20050727
  Serious: Yes (Life-Threatening, Hospitalization)
  Sender: FDA-Public Use
  Company Number: ZICO001152

PATIENT
  Age: 50 Year
  Sex: Female
  Weight: 58.9676 kg

DRUGS (5)
  1. ZICONOTIDE (ZICONOTIDE) [Suspect]
     Indication: PAIN
     Dosage: 0.0 MCG/HR INTRATHECAL
     Route: 037
     Dates: start: 20041007, end: 20041207
  2. METHADONE HCL [Suspect]
     Indication: PAIN
  3. GEODON [Suspect]
     Indication: PSYCHOTIC DISORDER
     Dates: start: 20041212
  4. ACTIQ [Concomitant]
  5. DURAGESIC PATCH (DURAGESIC PATCH) [Concomitant]

REACTIONS (24)
  - AGGRESSION [None]
  - AGITATION [None]
  - BLOOD POTASSIUM DECREASED [None]
  - CONFUSIONAL STATE [None]
  - DRUG TOXICITY [None]
  - ELECTROCARDIOGRAM QT CORRECTED INTERVAL PROLONGED [None]
  - ELECTROCARDIOGRAM QT PROLONGED [None]
  - ELECTROCARDIOGRAM R ON T PHENOMENON [None]
  - ELECTROCARDIOGRAM ST-T SEGMENT ABNORMAL [None]
  - HALLUCINATION [None]
  - HYPERSOMNIA [None]
  - HYPOGLYCAEMIA [None]
  - HYPOTENSION [None]
  - INSOMNIA [None]
  - MEMORY IMPAIRMENT [None]
  - OVERDOSE [None]
  - PARANOIA [None]
  - PSYCHOTIC DISORDER [None]
  - PULSE ABSENT [None]
  - RHABDOMYOLYSIS [None]
  - SINUS TACHYCARDIA [None]
  - TORSADE DE POINTES [None]
  - TROPONIN INCREASED [None]
  - VENTRICULAR TACHYCARDIA [None]
